FAERS Safety Report 6856633-6 (Version None)
Quarter: 2010Q3

REPORT INFORMATION
  Report Type: 
  Country: None (occurrence: None)
  Receive Date: 20100716
  Receipt Date: 20100716
  Transmission Date: 20110219
  Serious: Yes (Hospitalization)
  Sender: FDA-Public Use
  Company Number: None

PATIENT
  Age: 72 Year
  Sex: Female
  Weight: 65.7716 kg

DRUGS (1)
  1. ROZEREM [Suspect]
     Indication: SLEEP DISORDER
     Dosage: 8MG BEDTIME PO
     Route: 048
     Dates: start: 20080601, end: 20100626

REACTIONS (6)
  - ABASIA [None]
  - DYSPHAGIA [None]
  - FALL [None]
  - HYPERSOMNIA [None]
  - OVERDOSE [None]
  - PNEUMONIA [None]
